FAERS Safety Report 6737667-9 (Version None)
Quarter: 2010Q2

REPORT INFORMATION
  Report Type: 
  Country: None (occurrence: None)
  Receive Date: 20100524
  Receipt Date: 20100518
  Transmission Date: 20101027
  Serious: Yes (Death)
  Sender: FDA-Public Use
  Company Number: PE-ASTRAZENECA-2010SE22751

PATIENT
  Age: 22 Year
  Sex: Female

DRUGS (2)
  1. NEXIUM [Suspect]
     Indication: GASTRITIS EROSIVE
     Route: 048
  2. AMOXICILINE [Concomitant]
     Route: 048

REACTIONS (3)
  - COMPLETED SUICIDE [None]
  - DYSPEPSIA [None]
  - VOMITING [None]
